FAERS Safety Report 8107698-5 (Version None)
Quarter: 2012Q1

REPORT INFORMATION
  Report Type: 
  Country: None (occurrence: None)
  Receive Date: 20120202
  Receipt Date: 20120126
  Transmission Date: 20120608
  Serious: No
  Sender: FDA-Public Use
  Company Number: US-B.I. PHARMACEUTICALS,INC./RIDGEFIELD-2012-BP-01624BP

PATIENT
  Age: 79 Year
  Sex: Female

DRUGS (7)
  1. KEPPRA [Concomitant]
     Indication: CONVULSION
  2. TRICOR [Concomitant]
     Indication: BLOOD CHOLESTEROL INCREASED
  3. PRADAXA [Suspect]
     Indication: ATRIAL FIBRILLATION
     Dosage: 300 MG
     Route: 048
     Dates: start: 20110101
  4. COREG [Concomitant]
     Indication: CARDIAC DISORDER
  5. ALTACE [Concomitant]
     Indication: HYPERTENSION
  6. MULTI-VITAMIN [Concomitant]
     Indication: SUPPLEMENTATION THERAPY
  7. PREMARIN [Concomitant]
     Indication: SUPPLEMENTATION THERAPY

REACTIONS (3)
  - RECTAL HAEMORRHAGE [None]
  - DIARRHOEA [None]
  - CONSTIPATION [None]
